FAERS Safety Report 13557444 (Version 1)
Quarter: 2017Q2

REPORT INFORMATION
  Report Type: Spontaneous
  Country: US (occurrence: US)
  Receive Date: 20170517
  Receipt Date: 20170517
  Transmission Date: 20170830
  Serious: No
  Sender: FDA-Public Use
  Company Number: None

PATIENT
  Age: 46 Year
  Sex: Female
  Weight: 75.6 kg

DRUGS (7)
  1. FUROSEMIDE. [Concomitant]
     Active Substance: FUROSEMIDE
  2. SYNTHROID [Concomitant]
     Active Substance: LEVOTHYROXINE SODIUM
  3. CALCIUM SUPPLEMENT [Concomitant]
     Active Substance: CALCIUM
  4. ONE-A-DAY WOMEN^S VITAMIN [Concomitant]
  5. IRON SUPPLEMENT [Concomitant]
     Active Substance: IRON
  6. AZITHROMYCIN 250 MG [Suspect]
     Active Substance: AZITHROMYCIN ANHYDROUS
     Indication: BRONCHITIS
     Dosage: ?          QUANTITY:1 TABLET(S);?
     Route: 048
     Dates: start: 20170508, end: 20170512
  7. METPROLOL [Concomitant]
     Active Substance: METOPROLOL

REACTIONS (4)
  - Emotional disorder [None]
  - Vertigo [None]
  - Nausea [None]
  - Impaired work ability [None]

NARRATIVE: CASE EVENT DATE: 20170514
